FAERS Safety Report 16349861 (Version 1)
Quarter: 2019Q2

REPORT INFORMATION
  Report Type: Spontaneous
  Country: IN (occurrence: IN)
  Receive Date: 20190523
  Receipt Date: 20190523
  Transmission Date: 20190711
  Serious: Yes (Death)
  Sender: FDA-Public Use
  Company Number: IN-PFIZER INC-2019222121

PATIENT
  Age: 36 Year
  Sex: Female

DRUGS (1)
  1. PALBACE [Suspect]
     Active Substance: PALBOCICLIB
     Indication: BREAST CANCER METASTATIC
     Dosage: 125 MG, 1X/DAY
     Route: 048
     Dates: start: 20190330

REACTIONS (4)
  - Platelet count decreased [Unknown]
  - Infection [Unknown]
  - Blood count abnormal [Unknown]
  - Death [Fatal]

NARRATIVE: CASE EVENT DATE: 20190415
